FAERS Safety Report 21793839 (Version 1)
Quarter: 2022Q4

REPORT INFORMATION
  Report Type: Spontaneous
  Country: US (occurrence: None)
  Receive Date: 20221228
  Receipt Date: 20221228
  Transmission Date: 20230112
  Serious: Yes (Hospitalization)
  Sender: FDA-Public Use
  Company Number: None

PATIENT
  Age: 58 Year
  Sex: Female
  Weight: 63.9 kg

DRUGS (8)
  1. YESCARTA [Suspect]
     Active Substance: AXICABTAGENE CILOLEUCEL
     Indication: Diffuse large B-cell lymphoma
     Dosage: OTHER FREQUENCY : ONCE;?
     Route: 041
     Dates: start: 20220923
  2. ACTEMRA [Concomitant]
     Active Substance: TOCILIZUMAB
     Dates: start: 20220924, end: 20221007
  3. dexAMETHasone (Decadron) injection [Concomitant]
     Dates: start: 20220924, end: 20221014
  4. anakinra (Kineret) [Concomitant]
     Dates: start: 20220926, end: 20221014
  5. acyclovir (Zovirax) [Concomitant]
     Dates: start: 20220922, end: 20221228
  6. levETIRAcetam (Keppra [Concomitant]
     Dates: start: 20220922, end: 20221223
  7. cefepime (Maxipime [Concomitant]
     Dates: start: 20220924, end: 20220928
  8. piperacillin-tazobactam (Zosyn [Concomitant]
     Dates: start: 20220928, end: 20221003

REACTIONS (3)
  - Cytokine release syndrome [None]
  - Immune effector cell-associated neurotoxicity syndrome [None]
  - Atrial fibrillation [None]

NARRATIVE: CASE EVENT DATE: 20220101
